FAERS Safety Report 20264591 (Version 1)
Quarter: 2021Q4

REPORT INFORMATION
  Report Type: Report from Study
  Country: IT (occurrence: IT)
  Receive Date: 20211231
  Receipt Date: 20211231
  Transmission Date: 20220303
  Serious: Yes (Life-Threatening, Hospitalization)
  Sender: FDA-Public Use
  Company Number: IT-FEDR-MF-002-3641004-20211227-0005SG

PATIENT
  Age: 71 Year
  Sex: Female
  Weight: 60 kg

DRUGS (5)
  1. FEDRATINIB [Suspect]
     Active Substance: FEDRATINIB
     Indication: Primary myelofibrosis
     Dosage: 400 MG X 1 X 1 DAYS
     Route: 048
     Dates: start: 20201026, end: 20201114
  2. ALLOPURINOL [Concomitant]
     Active Substance: ALLOPURINOL
     Indication: Prophylaxis
     Dosage: 300 MG X 1 X 2 DAYS
     Route: 048
  3. LAMIVUDINE [Concomitant]
     Active Substance: LAMIVUDINE
     Indication: Antiviral prophylaxis
     Dosage: 100 MG X 1 X 1 DAYS
     Route: 048
  4. PARACETAMOL 500 MG+CODEIN 30 MG [Concomitant]
     Indication: Pain
     Dosage: 500MG/30MG TABLET TABLET X 3 X 1 DAYS
     Route: 048
     Dates: start: 20210119
  5. PREDNISONE [Concomitant]
     Active Substance: PREDNISONE
     Indication: Myelofibrosis
     Dosage: 6.25 MG X 1 X 1 DAYS
     Route: 048
     Dates: start: 20210125

REACTIONS (1)
  - Thrombocytopenia [Not Recovered/Not Resolved]

NARRATIVE: CASE EVENT DATE: 20210104
